FAERS Safety Report 9347341 (Version 2)
Quarter: 2013Q2

REPORT INFORMATION
  Report Type: Spontaneous
  Country: US (occurrence: US)
  Receive Date: 20130613
  Receipt Date: 20130619
  Transmission Date: 20140414
  Serious: Yes (Other)
  Sender: FDA-Public Use
  Company Number: US-PFIZER INC-2013174419

PATIENT
  Sex: 0

DRUGS (3)
  1. PREMARIN [Suspect]
     Dosage: UNK
  2. PROTONIX [Suspect]
     Dosage: UNK
  3. LYRICA [Suspect]
     Dosage: UNK

REACTIONS (1)
  - Laryngitis [Unknown]
